FAERS Safety Report 10708930 (Version 1)
Quarter: 2015Q1

REPORT INFORMATION
  Report Type: Spontaneous
  Country: US (occurrence: US)
  Receive Date: 20150114
  Receipt Date: 20150114
  Transmission Date: 20150721
  Serious: Yes (Death, Hospitalization)
  Sender: FDA-Public Use
  Company Number: US-ASTRAZENECA-2015SE01451

PATIENT
  Age: 30 Year
  Sex: Female

DRUGS (5)
  1. TRAZODONE [Suspect]
     Active Substance: TRAZODONE HYDROCHLORIDE
  2. CHLORPROMAZINE [Suspect]
     Active Substance: CHLORPROMAZINE
  3. QUETIAPINE [Suspect]
     Active Substance: QUETIAPINE
     Route: 048
  4. MORPHINE [Suspect]
     Active Substance: MORPHINE
  5. CITALOPRAM [Suspect]
     Active Substance: CITALOPRAM HYDROBROMIDE

REACTIONS (3)
  - Death [Fatal]
  - Toxicity to various agents [Fatal]
  - Cardio-respiratory arrest [Fatal]
